FAERS Safety Report 5189222-2 (Version None)
Quarter: 2006Q4

REPORT INFORMATION
  Report Type: 
  Country: None (occurrence: None)
  Receive Date: 20061215
  Receipt Date: 20061018
  Transmission Date: 20070319
  Serious: Yes (Hospitalization)
  Sender: FDA-Public Use
  Company Number: SPV1-2006-02127

PATIENT
  Sex: Female

DRUGS (3)
  1. PENTASA [Suspect]
     Indication: CROHN'S DISEASE
  2. OLSALAZINE [Concomitant]
  3. PREDNISOLONE [Concomitant]

REACTIONS (3)
  - PERICARDIAL EFFUSION [None]
  - PNEUMONITIS [None]
  - PULMONARY FIBROSIS [None]
